FAERS Safety Report 4270739-X (Version None)
Quarter: 2004Q1

REPORT INFORMATION
  Report Type: 
  Country: None (occurrence: None)
  Receive Date: 20040113
  Receipt Date: 20040102
  Transmission Date: 20041129
  Serious: Yes (Other)
  Sender: FDA-Public Use
  Company Number: 200410047BWH

PATIENT
  Age: 68 Year
  Sex: Male
  Weight: 106.5953 kg

DRUGS (4)
  1. LEVITRA [Suspect]
     Indication: ERECTILE DYSFUNCTION
     Dosage: 20 MG, ONCE, ORAL
     Route: 048
     Dates: start: 20031201
  2. LIPITOR [Concomitant]
  3. PRILOSEC [Concomitant]
  4. LISINOPRIL [Concomitant]

REACTIONS (4)
  - DRUG LEVEL ABOVE THERAPEUTIC [None]
  - HAEMATOSPERMIA [None]
  - NOCTURIA [None]
  - SELF-MEDICATION [None]
